FAERS Safety Report 21494650 (Version 2)
Quarter: 2022Q4

REPORT INFORMATION
  Report Type: Spontaneous
  Country: US (occurrence: US)
  Receive Date: 20221021
  Receipt Date: 20221028
  Transmission Date: 20230113
  Serious: Yes (Other)
  Sender: FDA-Public Use
  Company Number: US-ALLERGAN-2234433US

PATIENT
  Sex: Female
  Weight: 59.42 kg

DRUGS (2)
  1. LUMIGAN [Suspect]
     Active Substance: BIMATOPROST
     Indication: Ocular discomfort
     Dosage: EVERY EVENING, ONE DROP PER EACH EYE
     Route: 047
     Dates: start: 20221007
  2. AMLODIPINE BESYLATE [Concomitant]
     Active Substance: AMLODIPINE BESYLATE
     Indication: Hypertension
     Dosage: 2.5 MG, QD

REACTIONS (8)
  - Depressed level of consciousness [Recovering/Resolving]
  - Cerebral disorder [Unknown]
  - Asthenia [Recovering/Resolving]
  - Pruritus [Recovered/Resolved]
  - Overdose [Unknown]
  - Accidental exposure to product [Unknown]
  - Intentional dose omission [Unknown]
  - Product delivery mechanism issue [Unknown]

NARRATIVE: CASE EVENT DATE: 20221006
